FAERS Safety Report 8330634-3 (Version None)
Quarter: 2012Q2

REPORT INFORMATION
  Report Type: 
  Country: None (occurrence: None)
  Receive Date: 20120502
  Receipt Date: 20120417
  Transmission Date: 20120825
  Serious: No
  Sender: FDA-Public Use
  Company Number: US-ENDO PHARMACEUTICALS INC.-OPGN20120005

PATIENT
  Sex: Female

DRUGS (2)
  1. OPANA ER [Concomitant]
     Indication: PAIN
     Route: 048
  2. OXYMORPHONE HYDROCHLORIDE [Suspect]
     Indication: PAIN
     Route: 048
     Dates: start: 20070101, end: 20120101

REACTIONS (1)
  - EXPIRED DRUG ADMINISTERED [None]
